FAERS Safety Report 5107710-1 (Version None)
Quarter: 2006Q3

REPORT INFORMATION
  Report Type: 
  Country: None (occurrence: None)
  Receive Date: 20060919
  Receipt Date: 20060908
  Transmission Date: 20061208
  Serious: Yes (Hospitalization, Other)
  Sender: FDA-Public Use
  Company Number: CA-ABBOTT-06P-028-0343572-00

PATIENT
  Sex: Male

DRUGS (2)
  1. CIPRALEX TABLETS [Suspect]
     Indication: DEPRESSION
     Dates: start: 20060101, end: 20060301
  2. CLONAZEPAM [Concomitant]
     Indication: INSOMNIA
     Dates: end: 20060101

REACTIONS (1)
  - ANAPHYLACTIC REACTION [None]
